FAERS Safety Report 9925582 (Version 1)
Quarter: 2014Q1

REPORT INFORMATION
  Report Type: Spontaneous
  Country: US (occurrence: None)
  Receive Date: 20140221
  Receipt Date: 20140221
  Transmission Date: 20141002
  Serious: Yes (Hospitalization)
  Sender: FDA-Public Use
  Company Number: SYM-2014-17347

PATIENT
  Age: 36 Year
  Sex: Male

DRUGS (2)
  1. XENAZINE (25 MILLIGRAM, TABLET) (TETRABENAZINE, TETRABENAZINE) [Suspect]
     Indication: TOURETTE^S DISORDER
     Route: 048
     Dates: start: 20110202
  2. XENAZINE (25 MILLIGRAM, TABLET) (TETRABENAZINE, TETRABENAZINE) [Suspect]
     Indication: OFF LABEL USE
     Route: 048
     Dates: start: 20110202

REACTIONS (1)
  - Staphylococcal infection [None]
